FAERS Safety Report 23907605 (Version 1)
Quarter: 2024Q2

REPORT INFORMATION
  Report Type: Spontaneous
  Country: CN (occurrence: CN)
  Receive Date: 20240528
  Receipt Date: 20240528
  Transmission Date: 20240716
  Serious: Yes (Other)
  Sender: FDA-Public Use
  Company Number: None

PATIENT
  Age: 47 Year
  Sex: Female
  Weight: 50 kg

DRUGS (4)
  1. CYCLOPHOSPHAMIDE [Suspect]
     Active Substance: CYCLOPHOSPHAMIDE
     Indication: Breast cancer female
     Dosage: 0.8 G, ONE TIME IN ONE DAY, D1, DILUTED WITH 0.9% SODIUM CHLORIDE 50 ML
     Route: 041
     Dates: start: 20240417, end: 20240417
  2. SODIUM CHLORIDE [Suspect]
     Active Substance: SODIUM CHLORIDE
     Indication: Medication dilution
     Dosage: 50 ML, ONE TIME IN ONE DAY , D1, USED TO DILUTE 0.8 G OF CYCLOPHOSPHAMIDE
     Route: 041
     Dates: start: 20240417, end: 20240417
  3. SODIUM CHLORIDE [Suspect]
     Active Substance: SODIUM CHLORIDE
     Dosage: 350 ML, ONE TIME IN ONE DAY, D1, USED TO DILUTE 110 MG OF DOCETAXEL
     Route: 041
     Dates: start: 20240417, end: 20240417
  4. DOCETAXEL [Suspect]
     Active Substance: DOCETAXEL\DOCETAXEL ANHYDROUS
     Indication: Breast cancer female
     Dosage: 110 MG, ONE TIME IN ONE DAY, D1, DILUTED WITH 0.9% SODIUM CHLORIDE 350 ML
     Route: 041
     Dates: start: 20240417, end: 20240417

REACTIONS (1)
  - Leukopenia [Recovered/Resolved]

NARRATIVE: CASE EVENT DATE: 20240507
